FAERS Safety Report 18228684 (Version 1)
Quarter: 2020Q3

REPORT INFORMATION
  Report Type: Spontaneous
  Country: US (occurrence: US)
  Receive Date: 20200903
  Receipt Date: 20200903
  Transmission Date: 20201103
  Serious: No
  Sender: FDA-Public Use
  Company Number: US-BECTON DICKINSON-2019BDN00316

PATIENT
  Age: 66 Year
  Sex: Male
  Weight: 113.38 kg

DRUGS (2)
  1. CHLORAPREP [Suspect]
     Active Substance: CHLORHEXIDINE GLUCONATE\ISOPROPYL ALCOHOL
     Indication: INFECTION PROPHYLAXIS
     Dosage: UNK
     Route: 061
     Dates: start: 20190813, end: 20190813
  2. ELIQUIS [Suspect]
     Active Substance: APIXABAN
     Indication: ANTICOAGULANT THERAPY
     Dosage: UNK

REACTIONS (3)
  - Urticaria [Recovering/Resolving]
  - Drug interaction [Recovered/Resolved]
  - Rash [Recovering/Resolving]

NARRATIVE: CASE EVENT DATE: 20190813
